FAERS Safety Report 19516572 (Version 1)
Quarter: 2021Q3

REPORT INFORMATION
  Report Type: Spontaneous
  Country: US (occurrence: US)
  Receive Date: 20210709
  Receipt Date: 20210709
  Transmission Date: 20211014
  Serious: No
  Sender: FDA-Public Use
  Company Number: US-ASTELLAS-2020US040994

PATIENT
  Sex: Female

DRUGS (2)
  1. MYRBETRIQ [Suspect]
     Active Substance: MIRABEGRON
     Route: 065
     Dates: start: 20201021
  2. MYRBETRIQ [Suspect]
     Active Substance: MIRABEGRON
     Indication: PRODUCT USED FOR UNKNOWN INDICATION
     Route: 065
     Dates: start: 2018

REACTIONS (8)
  - Condition aggravated [Unknown]
  - Abdominal pain upper [Unknown]
  - Micturition urgency [Unknown]
  - Confusional state [Unknown]
  - Impatience [Unknown]
  - Therapeutic product effect incomplete [Unknown]
  - Speech disorder [Unknown]
  - Inappropriate schedule of product administration [Unknown]
